FAERS Safety Report 7657272-X (Version None)
Quarter: 2011Q3

REPORT INFORMATION
  Report Type: 
  Country: None (occurrence: None)
  Receive Date: 20110804
  Receipt Date: 20110727
  Transmission Date: 20111222
  Serious: Yes (Other)
  Sender: FDA-Public Use
  Company Number: JP-BAYER-2011-020681

PATIENT
  Age: 74 Year
  Sex: Male

DRUGS (2)
  1. SORAFENIB (RAF KINASE INHIBITOR) [Suspect]
     Dosage: DAILY DOSE 400 MG
     Dates: start: 20110225
  2. SORAFENIB (RAF KINASE INHIBITOR) [Suspect]
     Indication: HEPATIC NEOPLASM MALIGNANT
     Dosage: DAILY DOSE 800 MG
     Route: 048
     Dates: start: 20110108, end: 20110214

REACTIONS (5)
  - ALOPECIA [None]
  - DYSPNOEA [None]
  - PERICARDIAL EFFUSION [None]
  - DYSPHONIA [None]
  - MALAISE [None]
